FAERS Safety Report 13374075 (Version 1)
Quarter: 2017Q1

REPORT INFORMATION
  Report Type: Spontaneous
  Country: US (occurrence: US)
  Receive Date: 20170325
  Receipt Date: 20170325
  Transmission Date: 20170429
  Serious: Yes (Hospitalization)
  Sender: FDA-Public Use
  Company Number: None

PATIENT
  Age: 66 Year
  Sex: Female
  Weight: 92.94 kg

DRUGS (3)
  1. DEXAMETHASONE. [Suspect]
     Active Substance: DEXAMETHASONE
     Dates: end: 20160701
  2. LENALIDOMIDE (CC-5013) [Suspect]
     Active Substance: LENALIDOMIDE
     Dates: end: 20160703
  3. VELCADE [Suspect]
     Active Substance: BORTEZOMIB
     Dates: end: 20160711

REACTIONS (5)
  - Hypoaesthesia [None]
  - Gait disturbance [None]
  - Clumsiness [None]
  - Grip strength decreased [None]
  - Muscular weakness [None]

NARRATIVE: CASE EVENT DATE: 20160714
